FAERS Safety Report 9405248 (Version 1)
Quarter: 2013Q3

REPORT INFORMATION
  Report Type: Spontaneous
  Country: US (occurrence: US)
  Receive Date: 20130717
  Receipt Date: 20130717
  Transmission Date: 20140515
  Serious: Yes (Hospitalization)
  Sender: FDA-Public Use
  Company Number: US-BAYER-2013-086358

PATIENT
  Age: 24 Year
  Sex: Female

DRUGS (6)
  1. YASMIN [Suspect]
  2. GIANVI [Suspect]
  3. YAZ [Suspect]
  4. CONCERTA [Concomitant]
  5. ADDERALL [Concomitant]
  6. DAPSONE [Concomitant]

REACTIONS (1)
  - Transient ischaemic attack [None]
